FAERS Safety Report 5271439-X (Version None)
Quarter: 2007Q1

REPORT INFORMATION
  Report Type: 
  Country: None (occurrence: None)
  Receive Date: 20070321
  Receipt Date: 20070313
  Transmission Date: 20070707
  Serious: Yes (Hospitalization)
  Sender: FDA-Public Use
  Company Number: CA-BOEHRINGER INGELHEIM PHARMACEUTICALS, INC.-2007-CN-00234CN

PATIENT
  Sex: Female

DRUGS (1)
  1. MICARDIS HCT [Suspect]
     Dates: start: 20060315

REACTIONS (3)
  - FALL [None]
  - HAND FRACTURE [None]
  - UPPER LIMB FRACTURE [None]
